FAERS Safety Report 12848611 (Version 1)
Quarter: 2016Q4

REPORT INFORMATION
  Report Type: Spontaneous
  Country: US (occurrence: US)
  Receive Date: 20161014
  Receipt Date: 20161014
  Transmission Date: 20170207
  Serious: No
  Sender: FDA-Public Use
  Company Number: US-JNJFOC-20160826276

PATIENT
  Age: 80 Year
  Sex: Female
  Weight: 52.16 kg

DRUGS (3)
  1. TYLENOL 8 HR ARTHRITIS PAIN [Suspect]
     Active Substance: ACETAMINOPHEN
     Indication: PAIN
     Dosage: REINRODUCED PRODUCT USE
     Route: 048
  2. TYLENOL 8 HR ARTHRITIS PAIN [Suspect]
     Active Substance: ACETAMINOPHEN
     Indication: PAIN
     Dosage: STARTED ABOUT 6 MONTHS AGO, 1-2 TABLETS DAILY
     Route: 048
     Dates: end: 20160822
  3. OMEGA-3 FATTY ACIDS [Concomitant]
     Active Substance: OMEGA-3 FATTY ACIDS
     Indication: ANTIINFLAMMATORY THERAPY
     Dosage: TAKING FROM LAST 6 MONTHS
     Route: 065

REACTIONS (2)
  - Pruritus [Recovered/Resolved]
  - Incorrect dose administered [Unknown]
